FAERS Safety Report 5823346-9 (Version None)
Quarter: 2008Q3

REPORT INFORMATION
  Report Type: 
  Country: None (occurrence: None)
  Receive Date: 20080725
  Receipt Date: 20080717
  Transmission Date: 20090109
  Serious: Yes (Other)
  Sender: FDA-Public Use
  Company Number: JP-AMGEN-US296195

PATIENT
  Age: 57 Year
  Sex: Male

DRUGS (4)
  1. ENBREL [Suspect]
     Indication: RHEUMATOID ARTHRITIS
     Dosage: UNKNOWN DOSE; LYOPHILIZED
     Route: 058
     Dates: start: 20080614, end: 20080710
  2. ADALAT [Concomitant]
     Route: 065
  3. DIOVAN [Concomitant]
     Route: 065
  4. ISONIAZID [Concomitant]
     Route: 065

REACTIONS (5)
  - BULBAR PALSY [None]
  - DEMYELINATION [None]
  - DYSKINESIA [None]
  - DYSLALIA [None]
  - MULTIPLE SCLEROSIS [None]
